FAERS Safety Report 13459113 (Version 4)
Quarter: 2017Q2

REPORT INFORMATION
  Report Type: Report from Study
  Country: US (occurrence: US)
  Receive Date: 20170419
  Receipt Date: 20170609
  Transmission Date: 20170830
  Serious: Yes (Hospitalization, Other)
  Sender: FDA-Public Use
  Company Number: US-GILEAD-2017-0268311

PATIENT
  Age: 63 Year
  Sex: Male
  Weight: 78 kg

DRUGS (16)
  1. DOCUSATE [Concomitant]
     Active Substance: DOCUSATE
  2. MIRTAZAPINE. [Concomitant]
     Active Substance: MIRTAZAPINE
  3. FUROSEMIDE. [Concomitant]
     Active Substance: FUROSEMIDE
  4. ROSUVASTATIN. [Concomitant]
     Active Substance: ROSUVASTATIN
  5. SILDENAFIL. [Concomitant]
     Active Substance: SILDENAFIL
  6. SENNOSIDES A+B [Concomitant]
     Active Substance: SENNOSIDES A AND B
  7. GABAPENTIN. [Concomitant]
     Active Substance: GABAPENTIN
  8. POLYETHYLENE GLYCOL [Concomitant]
     Active Substance: POLYETHYLENE GLYCOLS
  9. AMBRISENTAN [Suspect]
     Active Substance: AMBRISENTAN
     Indication: PRODUCT USED FOR UNKNOWN INDICATION
     Dosage: 10 MG, QD
     Route: 065
  10. LORATADINE. [Concomitant]
     Active Substance: LORATADINE
  11. CYCLOSPORINE. [Concomitant]
     Active Substance: CYCLOSPORINE
     Indication: TRANSPLANT
     Dosage: UNK
  12. METOPROLOL. [Concomitant]
     Active Substance: METOPROLOL
  13. NALOXONE [Concomitant]
     Active Substance: NALOXONE
  14. OMEPRAZOLE. [Concomitant]
     Active Substance: OMEPRAZOLE
  15. AMLODIPINE [Concomitant]
     Active Substance: AMLODIPINE BESYLATE
  16. AZITHROMYCIN ANHYDROUS. [Concomitant]
     Active Substance: AZITHROMYCIN ANHYDROUS

REACTIONS (7)
  - Cardiac failure congestive [Not Recovered/Not Resolved]
  - Viral upper respiratory tract infection [Unknown]
  - Pneumonia [Not Recovered/Not Resolved]
  - Gait disturbance [Unknown]
  - Oxygen saturation decreased [Unknown]
  - Syncope [Not Recovered/Not Resolved]
  - Fluid retention [Unknown]
